FAERS Safety Report 19278847 (Version 1)
Quarter: 2021Q2

REPORT INFORMATION
  Report Type: Spontaneous
  Country: FR (occurrence: FR)
  Receive Date: 20210520
  Receipt Date: 20210520
  Transmission Date: 20210717
  Serious: Yes (Other)
  Sender: FDA-Public Use
  Company Number: FR-ACCORD-225437

PATIENT
  Age: 65 Year
  Sex: Male
  Weight: 54 kg

DRUGS (11)
  1. CEFOTAXIME [Suspect]
     Active Substance: CEFOTAXIME SODIUM
     Indication: OSTEITIS
     Route: 042
     Dates: start: 20201231, end: 20210103
  2. DOLIPRANE [Concomitant]
     Active Substance: ACETAMINOPHEN
  3. TRESIBA [Concomitant]
     Active Substance: INSULIN DEGLUDEC
  4. KARDEGIC [Concomitant]
     Active Substance: ASPIRIN DL-LYSINE
  5. METFORMIN ARROW [Suspect]
     Active Substance: METFORMIN HYDROCHLORIDE
     Indication: DIABETES MELLITUS
     Dosage: 500 MG FILM?COATED TABLET
     Route: 048
     Dates: start: 20201227, end: 20210106
  6. HUMALOG [Concomitant]
     Active Substance: INSULIN LISPRO
  7. ATORVASTATIN/ATORVASTATIN CALCIUM [Suspect]
     Active Substance: ATORVASTATIN CALCIUM
     Indication: DYSLIPIDAEMIA
     Route: 048
     Dates: start: 2018
  8. DAPTOMYCINE ACCORD [Suspect]
     Active Substance: DAPTOMYCIN
     Indication: OSTEITIS
     Route: 042
     Dates: start: 20201231, end: 20210103
  9. BISOPROLOL [Concomitant]
     Active Substance: BISOPROLOL
  10. RAMIPRIL. [Concomitant]
     Active Substance: RAMIPRIL
  11. EZETIMIBE. [Concomitant]
     Active Substance: EZETIMIBE

REACTIONS (2)
  - Cholestasis [Recovering/Resolving]
  - Off label use [Unknown]

NARRATIVE: CASE EVENT DATE: 20210103
